FAERS Safety Report 7795641-8 (Version None)
Quarter: 2011Q4

REPORT INFORMATION
  Report Type: 
  Country: None (occurrence: None)
  Receive Date: 20111004
  Receipt Date: 20110930
  Transmission Date: 20120403
  Serious: Yes (Hospitalization)
  Sender: FDA-Public Use
  Company Number: US-GLAXOSMITHKLINE-A0946843A

PATIENT
  Age: 59 Year
  Sex: Female
  Weight: 95 kg

DRUGS (10)
  1. AVANDIA [Suspect]
     Indication: DIABETES MELLITUS
     Dosage: 8MG PER DAY
     Route: 048
     Dates: end: 20070101
  2. ENALAPRIL MALEATE [Concomitant]
  3. XANAX [Concomitant]
  4. ADVAIR DISKUS 100/50 [Concomitant]
  5. COMBIVENT [Concomitant]
  6. LOPRESSOR [Concomitant]
  7. LIPITOR [Concomitant]
  8. CYMBALTA [Concomitant]
  9. GLIPIZIDE [Concomitant]
  10. WELLBUTRIN [Concomitant]

REACTIONS (6)
  - CARDIAC FAILURE CONGESTIVE [None]
  - TRANSIENT ISCHAEMIC ATTACK [None]
  - MYOCARDIAL INFARCTION [None]
  - CARDIAC OPERATION [None]
  - CORONARY ARTERIAL STENT INSERTION [None]
  - VENTRICULAR FIBRILLATION [None]
